FAERS Safety Report 8439793-5 (Version None)
Quarter: 2012Q2

REPORT INFORMATION
  Report Type: 
  Country: None (occurrence: None)
  Receive Date: 20120615
  Receipt Date: 20120611
  Transmission Date: 20120825
  Serious: Yes (Hospitalization)
  Sender: FDA-Public Use
  Company Number: FI-SANOFI-AVENTIS-2012SA028460

PATIENT
  Age: 59 Year
  Sex: Male
  Weight: 113 kg

DRUGS (12)
  1. CALCICHEW-D3 [Concomitant]
     Route: 065
  2. SELOCOMP ZOC [Concomitant]
  3. FELODIPINE [Concomitant]
     Route: 065
  4. CABAZITAXEL [Suspect]
     Indication: PROSTATE CANCER
     Route: 042
     Dates: start: 20110316, end: 20110316
  5. ANDROCUR [Concomitant]
     Route: 065
  6. CABAZITAXEL [Suspect]
     Route: 042
     Dates: start: 20120403, end: 20120403
  7. LASIX [Concomitant]
     Route: 065
  8. IBUPROFEN [Concomitant]
     Route: 065
  9. PREDNISOLONE [Suspect]
     Dates: start: 20100422
  10. NEXIUM [Concomitant]
  11. XATRAL CR [Concomitant]
     Route: 065
  12. ZOLADEX [Concomitant]
     Route: 065

REACTIONS (5)
  - LEUKOPENIA [None]
  - DEEP VEIN THROMBOSIS [None]
  - HAEMATURIA [None]
  - PNEUMONIA [None]
  - NEUTROPENIA [None]
